FAERS Safety Report 9375121 (Version 1)
Quarter: 2013Q2

REPORT INFORMATION
  Report Type: Spontaneous
  Country: BE (occurrence: BE)
  Receive Date: 20130628
  Receipt Date: 20130628
  Transmission Date: 20140414
  Serious: Yes (Life-Threatening, Other)
  Sender: FDA-Public Use
  Company Number: BE-ELI_LILLY_AND_COMPANY-BE201306006002

PATIENT
  Age: 49 Year
  Sex: Male
  Weight: 70 kg

DRUGS (5)
  1. CYMBALTA [Suspect]
     Indication: DEPRESSION
     Dosage: UNK, UNKNOWN
     Route: 048
     Dates: start: 20130615, end: 20130617
  2. VASEXTEN [Concomitant]
     Dosage: UNK, UNKNOWN
     Route: 065
  3. SPIRIVA [Concomitant]
     Dosage: UNK, UNKNOWN
     Route: 065
  4. SYMBICORT FORTE [Concomitant]
     Dosage: UNK, UNKNOWN
     Route: 065
  5. XANAX [Concomitant]
     Dosage: UNK, UNKNOWN
     Route: 065

REACTIONS (1)
  - Anuria [Recovered/Resolved]
